FAERS Safety Report 16370310 (Version 1)
Quarter: 2019Q2

REPORT INFORMATION
  Report Type: Spontaneous
  Country: FR (occurrence: FR)
  Receive Date: 20190530
  Receipt Date: 20190530
  Transmission Date: 20190711
  Serious: Yes (Other)
  Sender: FDA-Public Use
  Company Number: FR-AMGEN-FRASP2019083064

PATIENT
  Age: 77 Year
  Sex: Male

DRUGS (2)
  1. ARANESP [Suspect]
     Active Substance: DARBEPOETIN ALFA
     Indication: PRODUCT USED FOR UNKNOWN INDICATION
     Dosage: 500 MICROGRAM
     Route: 065
     Dates: start: 20190522
  2. SMECTA [Concomitant]
     Active Substance: MONTMORILLONITE

REACTIONS (5)
  - Diabetes mellitus [Not Recovered/Not Resolved]
  - Off label use [Unknown]
  - Dyspnoea [Not Recovered/Not Resolved]
  - Sense of oppression [Not Recovered/Not Resolved]
  - Abdominal pain [Not Recovered/Not Resolved]

NARRATIVE: CASE EVENT DATE: 20190522
